FAERS Safety Report 13247692 (Version 1)
Quarter: 2017Q1

REPORT INFORMATION
  Report Type: Spontaneous
  Country: PG (occurrence: PG)
  Receive Date: 20170217
  Receipt Date: 20170217
  Transmission Date: 20170428
  Serious: Yes (Death, Other)
  Sender: FDA-Public Use
  Company Number: PG-MYLANLABS-2017M1010123

PATIENT

DRUGS (5)
  1. AZITHROMYCIN ANHYDROUS. [Suspect]
     Active Substance: AZITHROMYCIN ANHYDROUS
     Route: 064
  2. IRON [Suspect]
     Active Substance: IRON
     Route: 064
  3. FOLIC ACID. [Suspect]
     Active Substance: FOLIC ACID
     Route: 064
  4. ALBENDAZOLE [Suspect]
     Active Substance: ALBENDAZOLE
     Route: 064
  5. PYRIMETHAMINE W/SULFADOXINE [Suspect]
     Active Substance: PYRIMETHAMINE\SULFADOXINE
     Route: 064

REACTIONS (5)
  - Premature baby [Unknown]
  - Death neonatal [Fatal]
  - Foetal exposure during pregnancy [Recovered/Resolved]
  - Foetal megacystis [Unknown]
  - Low birth weight baby [Unknown]
